FAERS Safety Report 7774532-2 (Version None)
Quarter: 2011Q3

REPORT INFORMATION
  Report Type: 
  Country: None (occurrence: None)
  Receive Date: 20110923
  Receipt Date: 20110923
  Transmission Date: 20111222
  Serious: No
  Sender: FDA-Public Use
  Company Number: None

PATIENT
  Age: 25 Year
  Sex: Female
  Weight: 56.699 kg

DRUGS (2)
  1. SYNTHROID [Suspect]
     Indication: HYPOTHYROIDISM
     Dosage: 1 TABLET
     Route: 048
     Dates: start: 20110616, end: 20110909
  2. SYNTHROID [Concomitant]
     Dosage: 1 TABLET
     Route: 048
     Dates: start: 20110221, end: 20110615

REACTIONS (3)
  - PRURITUS [None]
  - RASH [None]
  - PRODUCT SUBSTITUTION ISSUE [None]
